FAERS Safety Report 10750681 (Version 1)
Quarter: 2015Q1

REPORT INFORMATION
  Report Type: Spontaneous
  Country: US (occurrence: None)
  Receive Date: 20150126
  Receipt Date: 20150126
  Transmission Date: 20150721
  Serious: Yes (Hospitalization)
  Sender: FDA-Public Use
  Company Number: A-NJ2014-100306

PATIENT
  Age: 40 Year
  Sex: Male

DRUGS (5)
  1. REMODULIN [Suspect]
     Active Substance: TREPROSTINIL
     Indication: PRODUCT USED FOR UNKNOWN INDICATION
  2. TRACLEER [Suspect]
     Active Substance: BOSENTAN\BOSENTAN MONOHYDRATE
     Indication: COR PULMONALE CHRONIC
     Route: 048
  3. ADCIRCA [Concomitant]
     Active Substance: TADALAFIL
  4. COUMADIN [Concomitant]
     Active Substance: WARFARIN SODIUM
  5. TYVASO [Concomitant]
     Active Substance: TREPROSTINIL

REACTIONS (18)
  - Oedema [None]
  - Infusion site mass [None]
  - Dyspnoea [None]
  - Cough [None]
  - Infusion site vesicles [None]
  - Penile oedema [None]
  - Skin injury [None]
  - Dizziness [None]
  - Infusion site warmth [None]
  - Feeling abnormal [None]
  - Condition aggravated [None]
  - Infusion site pustule [None]
  - Blister rupture [None]
  - Infusion site pain [None]
  - Infusion site erythema [None]
  - Infusion site swelling [None]
  - Scrotal swelling [None]
  - Extravasation [None]

NARRATIVE: CASE EVENT DATE: 201407
